FAERS Safety Report 5873684-9 (Version None)
Quarter: 2008Q3

REPORT INFORMATION
  Report Type: 
  Country: None (occurrence: None)
  Receive Date: 20080908
  Receipt Date: 20080902
  Transmission Date: 20090109
  Serious: Yes (Hospitalization)
  Sender: FDA-Public Use
  Company Number: B0529390A

PATIENT
  Age: 88 Year
  Sex: Female
  Weight: 40 kg

DRUGS (1)
  1. VALTREX [Suspect]
     Indication: HERPES ZOSTER
     Dosage: 1000MG THREE TIMES PER DAY
     Route: 048
     Dates: start: 20080611, end: 20080613

REACTIONS (4)
  - ALTERED STATE OF CONSCIOUSNESS [None]
  - DEPRESSED LEVEL OF CONSCIOUSNESS [None]
  - OLIGURIA [None]
  - RENAL FAILURE ACUTE [None]
